FAERS Safety Report 24863827 (Version 1)
Quarter: 2025Q1

REPORT INFORMATION
  Report Type: Spontaneous
  Country: US (occurrence: US)
  Receive Date: 20250120
  Receipt Date: 20250120
  Transmission Date: 20250409
  Serious: No
  Sender: Phathom Pharmaceuticals
  Company Number: US-PHATHOM PHARMACEUTICALS INC.-2024PHT01170

PATIENT
  Age: 34 Year
  Sex: Female

DRUGS (2)
  1. VOQUEZNA TRIPLE PAK [Suspect]
     Active Substance: AMOXICILLIN\CLARITHROMYCIN\VONOPRAZAN FUMARATE
     Dosage: UNK, 2X/DAY
     Route: 048
     Dates: start: 20241018
  2. SPIRONOLACTONE [Concomitant]
     Active Substance: SPIRONOLACTONE

REACTIONS (4)
  - Pruritus [Unknown]
  - Burning sensation [Unknown]
  - Dysuria [Unknown]
  - Dysgeusia [Unknown]

NARRATIVE: CASE EVENT DATE: 20241001
